FAERS Safety Report 7610457-0 (Version None)
Quarter: 2011Q3

REPORT INFORMATION
  Report Type: 
  Country: None (occurrence: None)
  Receive Date: 20110707
  Receipt Date: 20110623
  Transmission Date: 20111222
  Serious: Yes (Other)
  Sender: FDA-Public Use
  Company Number: 2011MA007997

PATIENT
  Age: 14 Year
  Sex: Male

DRUGS (3)
  1. FLUDROCORTISONE ACETATE [Concomitant]
  2. HYDROCORTISONE [Concomitant]
  3. PHENYTOIN [Suspect]
     Indication: CONVULSION
     Dosage: 200 MG, QD;

REACTIONS (7)
  - SKIN HYPERPIGMENTATION [None]
  - BLOOD CORTICOTROPHIN INCREASED [None]
  - HYPONATRAEMIA [None]
  - HYPOGLYCAEMIA [None]
  - BLOOD POTASSIUM DECREASED [None]
  - VOMITING [None]
  - FATIGUE [None]
